FAERS Safety Report 4565541-5 (Version None)
Quarter: 2005Q1

REPORT INFORMATION
  Report Type: 
  Country: None (occurrence: None)
  Receive Date: 20050125
  Receipt Date: 20050125
  Transmission Date: 20050727
  Serious: Yes (Other)
  Sender: FDA-Public Use
  Company Number: None

PATIENT
  Age: 72 Year
  Sex: Female
  Weight: 90.7194 kg

DRUGS (3)
  1. ACTOS [Suspect]
     Indication: BLOOD GLUCOSE INCREASED
     Dosage: 1 DAILY
     Dates: start: 20041216, end: 20050112
  2. ACTOS [Suspect]
     Indication: DIABETES MELLITUS
     Dosage: 1 DAILY
     Dates: start: 20041216, end: 20050112
  3. CRESTOR [Suspect]
     Indication: BLOOD CHOLESTEROL INCREASED
     Dosage: 1 DAILY
     Dates: start: 20041216, end: 20041230

REACTIONS (4)
  - CONSTIPATION [None]
  - DIZZINESS [None]
  - FEELING ABNORMAL [None]
  - TREMOR [None]
